FAERS Safety Report 6256370-5 (Version None)
Quarter: 2009Q3

REPORT INFORMATION
  Report Type: 
  Country: None (occurrence: None)
  Receive Date: 20090706
  Receipt Date: 20080507
  Transmission Date: 20100115
  Serious: Yes (Death, Life-Threatening)
  Sender: FDA-Public Use
  Company Number: JP-NOVOPROD-272973

PATIENT
  Sex: Male
  Weight: 50 kg

DRUGS (29)
  1. NOVOSEVEN [Suspect]
     Indication: HAEMORRHAGE
     Dosage: 4.8 MG, UNK
     Route: 042
     Dates: start: 20070828
  2. RED BLOOD CELLS [Concomitant]
     Dosage: 36 IU, QD
     Route: 042
     Dates: start: 20070826
  3. FRISCHPLASMA [Concomitant]
     Indication: HYPOCOAGULABLE STATE
     Dosage: 44 IU, QD
     Route: 042
     Dates: start: 20070826
  4. PLATELETS [Concomitant]
     Indication: PLATELET COUNT DECREASED
     Dosage: 40 IU, QD
     Route: 042
     Dates: start: 20070826
  5. FENTANYL [Concomitant]
     Indication: SEDATION
     Dosage: 24 ML, QD
     Route: 042
     Dates: start: 20070826
  6. PROPOFOL [Concomitant]
     Indication: SEDATION
     Dosage: 360 ML, QD
     Route: 042
     Dates: start: 20070826
  7. KAKODIN [Concomitant]
     Indication: HYPOTENSION
     Dosage: 69 ML, QD
     Route: 042
     Dates: start: 20070826
  8. FUTHAN [Concomitant]
     Indication: CONTINUOUS HAEMODIAFILTRATION
     Dosage: 720 ML, QD
     Dates: start: 20070826
  9. ADONA                              /00056903/ [Concomitant]
     Indication: HAEMOSTASIS
     Dosage: UNK, QD
     Route: 042
     Dates: start: 20070826, end: 20070827
  10. TRANSAMIN S [Concomitant]
     Indication: HAEMOSTASIS
     Dosage: 21A
     Dates: start: 20070826, end: 20070827
  11. KAYTWO                             /00357701/ [Concomitant]
     Indication: HAEMOSTASIS
     Dosage: 2A
     Dates: start: 20070827, end: 20070827
  12. TRASYLOL [Concomitant]
     Indication: HAEMOSTASIS
     Dosage: 10000 IU, QD
     Dates: start: 20070826, end: 20070827
  13. PROTAMINE SULFATE [Concomitant]
     Indication: HAEMOSTASIS
     Dosage: 2 VIALS
     Route: 042
     Dates: start: 20070827, end: 20070827
  14. CEFAMEZIN                          /00288502/ [Concomitant]
     Indication: INFECTION PROPHYLAXIS
     Route: 042
  15. MAGNESOL                           /00434501/ [Concomitant]
     Indication: ARRHYTHMIA
  16. VASOLAN                            /00014302/ [Concomitant]
     Indication: ARRHYTHMIA
     Dosage: 1.25A
     Route: 042
     Dates: start: 20070827, end: 20070827
  17. HUMULIN R [Concomitant]
     Indication: HYPERGLYCAEMIA
     Route: 042
     Dates: start: 20070826
  18. SOLITA-T1 [Concomitant]
     Indication: FLUID IMBALANCE
     Dosage: 2000 ML, QD
     Route: 042
     Dates: start: 20070826
  19. ALBUMINAR                          /01102501/ [Concomitant]
     Indication: FLUID IMBALANCE
     Dosage: 500 ML, QD
     Route: 042
     Dates: start: 20070826, end: 20070827
  20. FOY [Concomitant]
     Indication: DISSEMINATED INTRAVASCULAR COAGULATION
     Dosage: 1500 MG, QD
     Route: 042
     Dates: start: 20070828
  21. PROSTARMON F [Concomitant]
     Indication: CONSTIPATION
     Dosage: 1 MG, QD
     Route: 042
     Dates: start: 20070828, end: 20070828
  22. MIRACLID [Concomitant]
     Indication: SHOCK
     Dosage: 15000 IU, QD
     Route: 042
     Dates: start: 20070826, end: 20070826
  23. ULTIVA [Concomitant]
     Indication: ANALGESIA
     Dosage: 1.7 MG, QD
     Route: 042
     Dates: start: 20070826, end: 20070826
  24. REPTILASE                          /02197201/ [Concomitant]
     Indication: HAEMOSTASIS
     Dosage: 2 IU, QD
     Route: 042
     Dates: start: 20070826, end: 20070826
  25. CALCICOL [Concomitant]
     Indication: PROPHYLAXIS
     Dosage: 1A
     Route: 042
     Dates: start: 20070826, end: 20070826
  26. PRIMPERAN                          /00041901/ [Concomitant]
     Indication: DYSPEPSIA
     Dosage: 1A
     Route: 042
     Dates: start: 20070826, end: 20070826
  27. KAYEXALATE [Concomitant]
     Indication: HYPERKALAEMIA
     Dosage: 20 G, QD
     Route: 048
     Dates: start: 20070827, end: 20070827
  28. PERDIPINE [Concomitant]
     Indication: HYPERTENSION
     Dosage: 6 ML, QD
     Route: 042
     Dates: start: 20070828
  29. AMINO ACIDS NOS W/CARBOHYD. NOS/ELECTROL. NOS [Concomitant]
     Indication: ELECTROLYTE SUBSTITUTION THERAPY
     Dosage: 2000 ML, UNK
     Route: 042
     Dates: start: 20070828

REACTIONS (1)
  - PLEURAL HAEMORRHAGE [None]
